FAERS Safety Report 6662410-1 (Version None)
Quarter: 2010Q1

REPORT INFORMATION
  Report Type: 
  Country: None (occurrence: None)
  Receive Date: 20100331
  Receipt Date: 20100323
  Transmission Date: 20100710
  Serious: Yes (Other)
  Sender: FDA-Public Use
  Company Number: US-B.I. PHARMACEUTICALS,INC./RIDGEFIELD-2010-BP-03450BP

PATIENT
  Sex: Female

DRUGS (4)
  1. DULCOLAX [Suspect]
     Indication: CONSTIPATION
     Dosage: 300 MG
     Route: 048
     Dates: start: 20100319
  2. DULCOLAX [Suspect]
     Route: 048
     Dates: start: 20080101
  3. DULCOLAX [Suspect]
     Indication: CONSTIPATION
     Dosage: 15 MG
     Route: 048
     Dates: start: 20100319
  4. DULCOLAX [Suspect]
     Indication: CONSTIPATION
     Route: 048
     Dates: start: 20100301, end: 20100301

REACTIONS (2)
  - ABNORMAL FAECES [None]
  - LUNG NEOPLASM MALIGNANT [None]
